FAERS Safety Report 15767362 (Version 1)
Quarter: 2018Q4

REPORT INFORMATION
  Report Type: Spontaneous
  Country: JP (occurrence: JP)
  Receive Date: 20181227
  Receipt Date: 20181227
  Transmission Date: 20190205
  Serious: Yes (Other)
  Sender: FDA-Public Use
  Company Number: GXJP2018JP001864

PATIENT
  Sex: Male

DRUGS (2)
  1. SOMATROPIN BS S.C. INJECTION [Suspect]
     Active Substance: SOMATROPIN
     Indication: PRODUCT USED FOR UNKNOWN INDICATION
     Dosage: 1.1 MG, UNK
     Route: 058
  2. SOMATROPIN BS S.C. INJECTION [Suspect]
     Active Substance: SOMATROPIN
     Dosage: 0.5 MG, UNK
     Route: 058

REACTIONS (2)
  - Product dispensing error [Unknown]
  - Haemorrhage [Unknown]

NARRATIVE: CASE EVENT DATE: 20181221
